FAERS Safety Report 16991537 (Version 2)
Quarter: 2019Q4

REPORT INFORMATION
  Report Type: Report from Study
  Country: BE (occurrence: BE)
  Receive Date: 20191104
  Receipt Date: 20191119
  Transmission Date: 20200122
  Serious: Yes (Hospitalization)
  Sender: FDA-Public Use
  Company Number: BE-EXELIXIS-XL18419024867

PATIENT
  Age: 63 Year
  Sex: Male
  Weight: 112 kg

DRUGS (4)
  1. ASAFLOW [Concomitant]
     Active Substance: ASPIRIN
  2. ALDACTONE [Concomitant]
     Active Substance: SPIRONOLACTONE
  3. ATEZOLIZUMAB. [Suspect]
     Active Substance: ATEZOLIZUMAB
     Indication: HEPATOCELLULAR CARCINOMA
     Dosage: 1200 MG, Q3WEEKS
     Route: 042
     Dates: start: 20190812
  4. XL184 [Suspect]
     Active Substance: CABOZANTINIB
     Indication: HEPATOCELLULAR CARCINOMA
     Dosage: 40 MG, QD
     Route: 048
     Dates: start: 20190812

REACTIONS (1)
  - Small intestinal obstruction [Not Recovered/Not Resolved]

NARRATIVE: CASE EVENT DATE: 20191026
